FAERS Safety Report 8509057-X (Version None)
Quarter: 2012Q3

REPORT INFORMATION
  Report Type: 
  Country: None (occurrence: None)
  Receive Date: 20120713
  Receipt Date: 20120706
  Transmission Date: 20120928
  Serious: Yes (Other)
  Sender: FDA-Public Use
  Company Number: NL-ABBOTT-12P-114-0954408-00

PATIENT
  Sex: Male
  Weight: 103 kg

DRUGS (5)
  1. ASPIRIN [Concomitant]
     Indication: ANTICOAGULANT THERAPY
     Route: 048
     Dates: start: 20080101
  2. METOPROLOL TARTRATE [Concomitant]
     Indication: HYPERTENSION
     Route: 048
     Dates: start: 20080101
  3. LEUPROLIDE ACETATE [Suspect]
     Indication: PROSTATE CANCER
     Route: 058
     Dates: start: 20110519
  4. MIDAZOLAM [Concomitant]
     Indication: INSOMNIA
     Route: 048
  5. HYDROCHLOROTHIAZIDE [Concomitant]
     Indication: FLUID RETENTION
     Route: 048
     Dates: start: 20090101

REACTIONS (10)
  - OSTEOPOROSIS [None]
  - RETINAL DISORDER [None]
  - WEIGHT INCREASED [None]
  - CATARACT [None]
  - OEDEMA PERIPHERAL [None]
  - ARTERIOSCLEROSIS [None]
  - VISUAL ACUITY REDUCED [None]
  - LOCALISED INFECTION [None]
  - ALOPECIA [None]
  - GENERAL PHYSICAL HEALTH DETERIORATION [None]
